FAERS Safety Report 4485052-5 (Version None)
Quarter: 2004Q4

REPORT INFORMATION
  Report Type: 
  Country: None (occurrence: None)
  Receive Date: 20040921
  Receipt Date: 20030822
  Transmission Date: 20050328
  Serious: Yes (Death, Life-Threatening)
  Sender: FDA-Public Use
  Company Number: 163-20785-02120211

PATIENT
  Age: 56 Year
  Sex: Male

DRUGS (33)
  1. THALOMID [Suspect]
     Indication: GLIOBLASTOMA MULTIFORME
     Dosage: 550 MG, DAILY, ORAL
     Route: 048
     Dates: start: 20021217, end: 20021223
  2. THALOMID [Suspect]
     Dosage: 600 MG, DAILY, ORAL
     Route: 048
     Dates: start: 20021224, end: 20021226
  3. THALOMID [Suspect]
     Dosage: 650 MG, DAILY, ORAL
     Route: 048
  4. THALOMID [Suspect]
     Dosage: 750 MG, DAILY, ORAL
     Route: 048
     Dates: start: 20030225, end: 20030304
  5. THALOMID [Suspect]
     Dosage: 600 MG, DAILY, ORAL
     Route: 048
     Dates: start: 20030305, end: 20030425
  6. CYCLOPHOSPHAMIDE [Suspect]
     Indication: GLIOBLASTOMA MULTIFORME
     Dosage: 100; 75 MG
     Dates: start: 20021030, end: 20021226
  7. CYCLOPHOSPHAMIDE [Suspect]
     Indication: GLIOBLASTOMA MULTIFORME
     Dosage: 100; 75 MG
     Dates: start: 20030223, end: 20030305
  8. DEXAMETHASONE [Suspect]
     Dosage: 2 MG, TID, ORAL
     Route: 048
     Dates: start: 20020621
  9. CELEBREX [Suspect]
     Indication: GLIOBLASTOMA MULTIFORME
     Dosage: 200 MG, BID, ORAL
     Route: 048
     Dates: start: 20021030
  10. CELEBREX [Suspect]
     Dosage: 400 MG, BID
     Dates: start: 20021031
  11. ETOPOSIDE [Suspect]
     Indication: GLIOBLASTOMA MULTIFORME
     Dosage: 100 MG, QD, ORAL
     Route: 048
     Dates: start: 20021030, end: 20021115
  12. DECADRON [Concomitant]
  13. PRILOSEC [Concomitant]
  14. ALDOMET [Concomitant]
  15. PREVACID [Concomitant]
  16. PROCRIT [Concomitant]
  17. LOVENOX [Concomitant]
  18. ASCORBIC ACID [Concomitant]
  19. KCL (POTASSIUM CHLORIDE) [Concomitant]
  20. FERROUS SULFATE TAB [Concomitant]
  21. CELEXA [Concomitant]
  22. NEXIUM [Concomitant]
  23. LORTAB [Concomitant]
  24. NEUPOGEN [Concomitant]
  25. PHENERGAN [Concomitant]
  26. CHOLESTYRAMINE (COLESTYRAMINE) [Concomitant]
  27. LOPERAMIDE HCL [Concomitant]
  28. METOCLOPRADE (METOCLOPRAMIDE) [Concomitant]
  29. GENTAMICIN [Concomitant]
  30. CEFOTAXINE (CEFOTAXINE) [Concomitant]
  31. HYDROCODONE (HYDROCODONE) [Concomitant]
  32. MEGACE [Concomitant]
  33. COLACE (DOCUSATE SODIUM) [Concomitant]

REACTIONS (22)
  - ANAEMIA [None]
  - BACTERIAL INFECTION [None]
  - CULTURE URINE [None]
  - CULTURE URINE POSITIVE [None]
  - DEATH [None]
  - DEEP VEIN THROMBOSIS [None]
  - DEHYDRATION [None]
  - DIARRHOEA [None]
  - DISEASE PROGRESSION [None]
  - ELECTROLYTE IMBALANCE [None]
  - FATIGUE [None]
  - HYPOTENSION [None]
  - LEUKOPENIA [None]
  - LIPASE [None]
  - LIPASE INCREASED [None]
  - NAUSEA [None]
  - NEUTROPENIA [None]
  - OTITIS MEDIA [None]
  - PANCYTOPENIA [None]
  - SEPSIS [None]
  - URINARY TRACT INFECTION [None]
  - VOMITING [None]
